FAERS Safety Report 9796334 (Version 1)
Quarter: 2014Q1

REPORT INFORMATION
  Report Type: Spontaneous
  Country: US (occurrence: US)
  Receive Date: 20140103
  Receipt Date: 20140103
  Transmission Date: 20141002
  Serious: Yes (Death)
  Sender: FDA-Public Use
  Company Number: US-JNJFOC-20140100610

PATIENT
  Sex: 0

DRUGS (3)
  1. INFLIXIMAB, RECOMBINANT [Suspect]
     Indication: ACUTE GRAFT VERSUS HOST DISEASE
     Dosage: MAXIMUM: 4 DOSES
     Route: 042
  2. CORTICOSTEROIDS [Concomitant]
     Indication: GRAFT VERSUS HOST DISEASE
     Route: 065
  3. CORTICOSTEROIDS [Concomitant]
     Indication: GRAFT VERSUS HOST DISEASE
     Dosage: TAPERED RAPIDLY AFTER START OF INFLIXIMAB
     Route: 065

REACTIONS (3)
  - Infection [Fatal]
  - Multi-organ failure [Fatal]
  - Drug ineffective for unapproved indication [Unknown]
